FAERS Safety Report 7409982-7 (Version None)
Quarter: 2011Q2

REPORT INFORMATION
  Report Type: 
  Country: None (occurrence: None)
  Receive Date: 20110412
  Receipt Date: 20110407
  Transmission Date: 20111010
  Serious: Yes (Life-Threatening, Other)
  Sender: FDA-Public Use
  Company Number: SE-PFIZER INC-2011076996

PATIENT
  Age: 18 Year
  Sex: Male

DRUGS (2)
  1. EFFEXOR [Concomitant]
     Dosage: 150 MG, UNK
  2. LYRICA [Suspect]
     Indication: ANXIETY
     Dosage: 300 MG, DAILY
     Route: 048

REACTIONS (1)
  - GRAND MAL CONVULSION [None]
